FAERS Safety Report 5033747-7 (Version None)
Quarter: 2006Q2

REPORT INFORMATION
  Report Type: 
  Country: None (occurrence: None)
  Receive Date: 20060623
  Receipt Date: 20060602
  Transmission Date: 20061013
  Serious: Yes (Death, Life-Threatening)
  Sender: FDA-Public Use
  Company Number: NO-NOVOPROD-253854

PATIENT
  Age: 79 Year
  Sex: Male
  Weight: 65 kg

DRUGS (13)
  1. NOVOSEVEN [Suspect]
     Indication: CEREBRAL HAEMORRHAGE
     Dosage: 20 UG/KG, SINGLE
     Route: 042
     Dates: start: 20060601, end: 20060601
  2. ENALAPRIL [Concomitant]
     Indication: HYPERTENSION
     Dosage: 5 MG, QD
     Route: 048
  3. ISOSORBIDE MONONITRATE [Concomitant]
     Indication: MYOCARDIAL ISCHAEMIA
     Dosage: 100 MG, QD
     Route: 048
  4. AMLODIPIN                          /00972401/ [Concomitant]
     Indication: HYPERTENSION
     Dosage: 10 MG, QD
     Route: 048
  5. DIGITOXIN TAB [Concomitant]
     Indication: CARDIAC FAILURE
     Dosage: .1 MG, QD
     Route: 048
     Dates: end: 20060603
  6. METOCLOPRAMIDE [Concomitant]
     Indication: PROPHYLAXIS
     Dates: start: 20060601, end: 20060601
  7. SODIUM NITROPRUSSIDE [Concomitant]
     Indication: CARDIAC FAILURE
     Dates: start: 20060602, end: 20060603
  8. PANTOPRAZOLE [Concomitant]
     Indication: PROPHYLAXIS AGAINST GASTROINTESTINAL ULCER
     Dates: start: 20060602, end: 20060603
  9. CEFOTAXIME [Concomitant]
     Indication: PROPHYLAXIS
     Dates: start: 20060603, end: 20060603
  10. GLYCEROLTRINITRAT [Concomitant]
     Indication: MYOCARDIAL ISCHAEMIA
     Dates: start: 20060602, end: 20060603
  11. IPRATROPIUM BROMIDE [Concomitant]
     Indication: CHRONIC OBSTRUCTIVE PULMONARY DISEASE
     Dates: start: 20060602, end: 20060603
  12. ACETYLCYSTEINE [Concomitant]
     Indication: CHRONIC OBSTRUCTIVE PULMONARY DISEASE
     Dates: start: 20060602, end: 20060603
  13. PARACETAMOL [Concomitant]
     Indication: PROPHYLAXIS
     Dosage: UNK, UNK
     Dates: start: 20060602, end: 20060603

REACTIONS (13)
  - BLOOD PRESSURE INCREASED [None]
  - BUNDLE BRANCH BLOCK LEFT [None]
  - DEPRESSED LEVEL OF CONSCIOUSNESS [None]
  - DYSPNOEA [None]
  - LEFT VENTRICULAR FAILURE [None]
  - MYOCARDIAL INFARCTION [None]
  - MYOCARDIAL ISCHAEMIA [None]
  - OXYGEN SATURATION DECREASED [None]
  - PULMONARY OEDEMA [None]
  - TACHYCARDIA [None]
  - TACHYPNOEA [None]
  - TROPONIN T INCREASED [None]
  - VENTRICULAR DYSFUNCTION [None]
